FAERS Safety Report 4377191-4 (Version None)
Quarter: 2004Q2

REPORT INFORMATION
  Report Type: 
  Country: None (occurrence: None)
  Receive Date: 20040614
  Receipt Date: 20040614
  Transmission Date: 20050107
  Serious: No
  Sender: FDA-Public Use
  Company Number: None

PATIENT
  Age: 75 Year
  Sex: Female
  Weight: 68.0396 kg

DRUGS (1)
  1. ALDARA [Suspect]
     Indication: BASAL CELL CARCINOMA
     Dosage: QOD FACE TOPICAL
     Route: 061
     Dates: start: 20040601, end: 20040603

REACTIONS (3)
  - BLISTER INFECTED [None]
  - SCAB [None]
  - WOUND SECRETION [None]
